FAERS Safety Report 21265393 (Version 1)
Quarter: 2022Q3

REPORT INFORMATION
  Report Type: Spontaneous
  Country: US (occurrence: US)
  Receive Date: 20220829
  Receipt Date: 20220829
  Transmission Date: 20221027
  Serious: No
  Sender: FDA-Public Use
  Company Number: US-BAYER-2022A114750

PATIENT
  Age: 65 Year
  Sex: Male

DRUGS (2)
  1. ASTEPRO [Suspect]
     Active Substance: AZELASTINE HYDROCHLORIDE
     Indication: Sinusitis
     Dosage: UNK
     Route: 055
     Dates: start: 20220814, end: 20220815
  2. AFRIN ALLERGY [Concomitant]
     Indication: Sinusitis
     Dosage: DOSE
     Route: 055

REACTIONS (1)
  - Drug ineffective for unapproved indication [Not Recovered/Not Resolved]

NARRATIVE: CASE EVENT DATE: 20220814
